FAERS Safety Report 5588292-7 (Version None)
Quarter: 2008Q1

REPORT INFORMATION
  Report Type: 
  Country: None (occurrence: None)
  Receive Date: 20080108
  Receipt Date: 20080103
  Transmission Date: 20080703
  Serious: Yes (Hospitalization)
  Sender: FDA-Public Use
  Company Number: 229-C5013-07120614

PATIENT
  Age: 74 Year
  Sex: Female
  Weight: 56.1 kg

DRUGS (13)
  1. CC-5013 (LENALIDOMIDE) (CAPSULES) [Suspect]
     Indication: MULTIPLE MYELOMA
     Dosage: ORAL; 25 MG, OD, ORAL
     Route: 048
     Dates: end: 20071015
  2. CC-5013 (LENALIDOMIDE) (CAPSULES) [Suspect]
     Indication: MULTIPLE MYELOMA
     Dosage: ORAL; 25 MG, OD, ORAL
     Route: 048
     Dates: start: 20071105, end: 20071207
  3. DEXAMETHASONE TAB [Suspect]
     Indication: MULTIPLE MYELOMA
     Dosage: 40 MG, OD D1-4
     Dates: start: 20071203, end: 20071206
  4. G-CSF (GRANULOCYTE COLONY STIMULATING FACTOR) [Concomitant]
  5. VANCOMYCIN (VANCOMYCIN) (500 MILLIGRAM) [Concomitant]
  6. NEORECORMIN (EPOETIN BETA) [Concomitant]
  7. ENOXAPARIN (ENOXAPARIN) (20 MILLIGRAM) [Concomitant]
  8. METOPROLOL TARTRATE [Concomitant]
  9. SANDOZ K (POTASSIUM CHLORIDE) [Concomitant]
  10. VALCYCLOVIR (VALACICLOVIR) [Concomitant]
  11. DIFLUCAN (FLUCONAOLE) (100 MILLIGRAM) [Concomitant]
  12. ASCORBIC ACID [Concomitant]
  13. BACTROBAN (MUPIROCIN) (OINTMENT) [Concomitant]

REACTIONS (16)
  - ATRIAL FIBRILLATION [None]
  - CARDIOMEGALY [None]
  - DEAFNESS [None]
  - DIALYSIS [None]
  - FEBRILE NEUTROPENIA [None]
  - GAMMA-GLUTAMYLTRANSFERASE INCREASED [None]
  - HAEMOGLOBIN DECREASED [None]
  - HERPES SIMPLEX [None]
  - HYPERTHYROIDISM [None]
  - NAUSEA [None]
  - NEUTROPENIC SEPSIS [None]
  - PNEUMONIA [None]
  - PULMONARY OEDEMA [None]
  - RENAL FAILURE ACUTE [None]
  - STAPHYLOCOCCAL INFECTION [None]
  - THROMBOCYTOPENIA [None]
